FAERS Safety Report 8999425 (Version 1)
Quarter: 2013Q1

REPORT INFORMATION
  Report Type: Spontaneous
  Country: US (occurrence: US)
  Receive Date: 20130103
  Receipt Date: 20130103
  Transmission Date: 20140127
  Serious: No
  Sender: FDA-Public Use
  Company Number: US-ASTRAZENECA-2012SE95182

PATIENT
  Age: 80 Year
  Sex: Female
  Weight: 74.4 kg

DRUGS (1)
  1. TENORETIC [Suspect]
     Route: 048

REACTIONS (6)
  - Decreased appetite [Unknown]
  - Restless legs syndrome [Unknown]
  - Fatigue [Unknown]
  - Dyspnoea [Unknown]
  - Gastrointestinal disorder [Unknown]
  - Dizziness [Unknown]
